FAERS Safety Report 4970003-7 (Version None)
Quarter: 2006Q1

REPORT INFORMATION
  Report Type: 
  Country: None (occurrence: None)
  Receive Date: 20060202
  Receipt Date: 20051118
  Transmission Date: 20060701
  Serious: Yes (Other)
  Sender: FDA-Public Use
  Company Number: US-2005-021511

PATIENT
  Age: 35 Year
  Sex: Female
  Weight: 90.2 kg

DRUGS (1)
  1. MIRENA [Suspect]
     Indication: CONTRACEPTION
     Dosage: 20UG/DAY CONT INTRA-UTERINE
     Route: 015
     Dates: start: 20050412, end: 20050921

REACTIONS (1)
  - IUD MIGRATION [None]
